FAERS Safety Report 12350987 (Version 1)
Quarter: 2016Q2

REPORT INFORMATION
  Report Type: Spontaneous
  Country: JP (occurrence: JP)
  Receive Date: 20160419
  Receipt Date: 20160419
  Transmission Date: 20160815
  Serious: Yes (Death, Other)
  Sender: FDA-Public Use
  Company Number: JP-MALLINCKRODT-T201601298

PATIENT
  Age: 62 Year
  Sex: Female

DRUGS (11)
  1. OXIFAST [Concomitant]
     Active Substance: OXYCODONE
     Dosage: 65.5 MG
     Route: 051
     Dates: end: 20151120
  2. METHADONE [Suspect]
     Active Substance: METHADONE HYDROCHLORIDE
     Indication: CANCER PAIN
     Dosage: 10 MG, (DAILY DOSE 20 MG)
     Route: 048
     Dates: start: 20151009, end: 20151012
  3. METHADONE [Suspect]
     Active Substance: METHADONE HYDROCHLORIDE
     Dosage: 10 MG, (10 MG DAILY DOSE)
     Route: 048
     Dates: start: 20151014, end: 20151109
  4. FENTOS [Concomitant]
     Active Substance: FENTANYL
     Indication: ANALGESIC THERAPY
     Dosage: 1 MG
     Route: 062
     Dates: start: 20151027, end: 20151108
  5. OXIFAST [Concomitant]
     Active Substance: OXYCODONE
     Indication: ANALGESIC THERAPY
     Dosage: 43.7 MG
     Route: 051
     Dates: end: 20151025
  6. OXIFAST [Concomitant]
     Active Substance: OXYCODONE
     Dosage: 3.6 MG, PRN
     Route: 051
     Dates: start: 20151102
  7. LYRICA [Concomitant]
     Active Substance: PREGABALIN
     Indication: ANALGESIC THERAPY
     Dosage: 25 MG
     Route: 048
     Dates: start: 20151009, end: 20151015
  8. MAGNESIUM OXIDE. [Concomitant]
     Active Substance: MAGNESIUM OXIDE
     Dosage: 990 MG
     Route: 048
     Dates: end: 20151114
  9. METHADONE [Suspect]
     Active Substance: METHADONE HYDROCHLORIDE
     Dosage: 30 MG DAILY DOSE
     Route: 048
     Dates: start: 20151013, end: 20151013
  10. METHADONE [Suspect]
     Active Substance: METHADONE HYDROCHLORIDE
     Dosage: 10 MG, (20 MG DAILY DOSE)
     Route: 048
     Dates: start: 20151110, end: 20151114
  11. FENTOS [Concomitant]
     Active Substance: FENTANYL
     Dosage: 2 MG
     Route: 048
     Dates: start: 20151109, end: 20151120

REACTIONS (5)
  - Delirium [Not Recovered/Not Resolved]
  - Malaise [Not Recovered/Not Resolved]
  - Somnolence [Recovered/Resolved]
  - Insomnia [Not Recovered/Not Resolved]
  - Pancreatic carcinoma [Fatal]

NARRATIVE: CASE EVENT DATE: 20151013
